FAERS Safety Report 7889735-6 (Version None)
Quarter: 2011Q4

REPORT INFORMATION
  Report Type: 
  Country: None (occurrence: None)
  Receive Date: 20111103
  Receipt Date: 20111031
  Transmission Date: 20120403
  Serious: Yes (Death, Hospitalization, Other)
  Sender: FDA-Public Use
  Company Number: BR-ABBOTT-11P-020-0870047-00

PATIENT
  Sex: Male
  Weight: 65 kg

DRUGS (5)
  1. UNSPECIFIED MEDICINE (REPORTED AS SIMILAR TO ACETYLSALICYLIC ACID) [Concomitant]
     Indication: PRODUCT USED FOR UNKNOWN INDICATION
  2. UNSPECIFIED MEDICINE (REPORTED AS RENAGEL) [Concomitant]
     Indication: PRODUCT USED FOR UNKNOWN INDICATION
  3. FOLIC ACID [Concomitant]
     Indication: PRODUCT USED FOR UNKNOWN INDICATION
  4. HUMIRA [Suspect]
     Indication: PSORIASIS
  5. CREATININE [Concomitant]
     Indication: PRODUCT USED FOR UNKNOWN INDICATION

REACTIONS (7)
  - INFARCTION [None]
  - RESPIRATORY DISORDER [None]
  - PAIN [None]
  - WEANING FAILURE [None]
  - DEATH [None]
  - UNEVALUABLE EVENT [None]
  - GASTRITIS [None]
